FAERS Safety Report 4294534-0 (Version None)
Quarter: 2004Q1

REPORT INFORMATION
  Report Type: 
  Country: None (occurrence: None)
  Receive Date: 20040213
  Receipt Date: 20040209
  Transmission Date: 20041129
  Serious: Yes (Other)
  Sender: FDA-Public Use
  Company Number: 200411820GDDC

PATIENT
  Age: 22 Year
  Sex: Female
  Weight: 92 kg

DRUGS (4)
  1. LANTUS [Suspect]
     Dosage: DOSE UNIT: UNITS
     Route: 058
     Dates: start: 20031214
  2. INSULIN ASPART [Concomitant]
     Indication: DIABETES MELLITUS
     Dosage: DOSE UNIT: UNITS
     Route: 058
     Dates: start: 20030819
  3. LISINOPRIL [Concomitant]
     Indication: HYPERTENSION
     Route: 048
     Dates: start: 20020613
  4. INSULATARD NPH HUMAN [Concomitant]

REACTIONS (1)
  - PARAESTHESIA [None]
